FAERS Safety Report 18624765 (Version 1)
Quarter: 2020Q4

REPORT INFORMATION
  Report Type: Spontaneous
  Country: FR (occurrence: FR)
  Receive Date: 20201216
  Receipt Date: 20201216
  Transmission Date: 20210114
  Serious: Yes (Hospitalization)
  Sender: FDA-Public Use
  Company Number: FR-MYLANLABS-2020M1100818

PATIENT
  Age: 74 Year
  Sex: Female
  Weight: 80 kg

DRUGS (2)
  1. LINEZOLID. [Suspect]
     Active Substance: LINEZOLID
     Indication: OSTEITIS
     Dosage: 1200 MILLIGRAM
     Route: 042
     Dates: start: 20201028
  2. AUGMENTIN [Suspect]
     Active Substance: AMOXICILLIN\CLAVULANATE POTASSIUM
     Indication: OSTEITIS
     Dosage: 2 GRAM
     Route: 042
     Dates: start: 20201023

REACTIONS (2)
  - Crystalluria [Recovered/Resolved]
  - Renal failure [Recovered/Resolved]

NARRATIVE: CASE EVENT DATE: 20201102
